FAERS Safety Report 5002184-3 (Version None)
Quarter: 2006Q2

REPORT INFORMATION
  Report Type: 
  Country: None (occurrence: None)
  Receive Date: 20060510
  Receipt Date: 20060502
  Transmission Date: 20061013
  Serious: Yes (Other)
  Sender: FDA-Public Use
  Company Number: 2006BI001631

PATIENT
  Age: 35 Year
  Sex: Female

DRUGS (2)
  1. AVONEX [Suspect]
     Indication: MULTIPLE SCLEROSIS
     Dosage: 30 UG;QW;IM
     Route: 030
     Dates: start: 20051001
  2. TYLENOL (GELTAB) [Concomitant]

REACTIONS (4)
  - HALLUCINATION [None]
  - INFLUENZA LIKE ILLNESS [None]
  - POST PROCEDURAL COMPLICATION [None]
  - PYREXIA [None]
